FAERS Safety Report 8816550 (Version 1)
Quarter: 2012Q4

REPORT INFORMATION
  Report Type: Spontaneous
  Country: US (occurrence: None)
  Receive Date: 20121001
  Receipt Date: 20121001
  Transmission Date: 20130627
  Serious: Yes (Hospitalization)
  Sender: FDA-Public Use
  Company Number: None

PATIENT
  Age: 64 Year
  Sex: Male
  Weight: 62 kg

DRUGS (3)
  1. METRONIDAZOLE [Suspect]
     Indication: BRAIN ABSCESS
     Route: 048
     Dates: start: 20120421, end: 20120925
  2. METRONIDAZOLE [Suspect]
     Indication: INFECTIVE ENDOCARDITIS
     Route: 048
     Dates: start: 20120421, end: 20120925
  3. MOXIFLOXACIN [Suspect]
     Route: 048
     Dates: start: 20120421, end: 20120925

REACTIONS (3)
  - Fall [None]
  - Craniocerebral injury [None]
  - Neuropathy peripheral [None]
